FAERS Safety Report 6693960-X (Version None)
Quarter: 2010Q2

REPORT INFORMATION
  Report Type: 
  Country: None (occurrence: None)
  Receive Date: 20100423
  Receipt Date: 20100413
  Transmission Date: 20101027
  Serious: Yes (Hospitalization, Other)
  Sender: FDA-Public Use
  Company Number: US-PFIZER INC-2010027637

PATIENT
  Sex: Female

DRUGS (6)
  1. ZOLOFT [Suspect]
     Indication: ANXIETY
     Dosage: 50 MG, 1X/DAY
     Route: 048
  2. ZOLOFT [Suspect]
     Indication: DEPRESSION
  3. DETROL LA [Suspect]
     Indication: HYPERTONIC BLADDER
     Dosage: UNK
     Route: 048
  4. CADUET [Suspect]
     Indication: HYPERTENSION
     Dosage: 2.5 / 10 MG ONCE DAILY
     Route: 048
  5. CADUET [Suspect]
     Indication: BLOOD CHOLESTEROL INCREASED
  6. CALAN [Suspect]
     Dosage: 240 MG, UNK
     Route: 048

REACTIONS (4)
  - ATRIAL FIBRILLATION [None]
  - BLOOD CHOLESTEROL INCREASED [None]
  - CARDIAC ARREST [None]
  - HYPERTENSION [None]
